FAERS Safety Report 21663043 (Version 5)
Quarter: 2023Q1

REPORT INFORMATION
  Report Type: Spontaneous
  Country: US (occurrence: US)
  Receive Date: 20221130
  Receipt Date: 20230309
  Transmission Date: 20230417
  Serious: No
  Sender: FDA-Public Use
  Company Number: US-002147023-NVSC2022US277398

PATIENT
  Sex: Female

DRUGS (2)
  1. MEKINIST [Suspect]
     Active Substance: TRAMETINIB DIMETHYL SULFOXIDE
     Indication: Ovarian cancer
     Dosage: 2 MG, QD (STRENGTH- 2 MG)
     Route: 048
     Dates: start: 20220902
  2. MEKINIST [Suspect]
     Active Substance: TRAMETINIB DIMETHYL SULFOXIDE
     Indication: Retroperitoneal cancer
     Dosage: 0.5 MG, TID (STRENGTH- 0.5 MG)
     Route: 048

REACTIONS (11)
  - Feeling abnormal [Recovered/Resolved]
  - Chapped lips [Recovered/Resolved]
  - Crying [Recovered/Resolved]
  - Nasal discomfort [Recovered/Resolved]
  - Abdominal pain upper [Unknown]
  - Diarrhoea [Unknown]
  - Fatigue [Recovered/Resolved]
  - Asthenia [Recovered/Resolved]
  - Product use in unapproved indication [Unknown]
  - Cognitive disorder [Unknown]
  - Alopecia [Unknown]
